FAERS Safety Report 7073778-9 (Version None)
Quarter: 2010Q4

REPORT INFORMATION
  Report Type: 
  Country: None (occurrence: None)
  Receive Date: 20101029
  Receipt Date: 20100806
  Transmission Date: 20110411
  Serious: No
  Sender: FDA-Public Use
  Company Number: A0876004A

PATIENT
  Sex: Female

DRUGS (6)
  1. ADVAIR DISKUS 100/50 [Suspect]
     Indication: PRODUCT USED FOR UNKNOWN INDICATION
     Dosage: 1PUFF TWICE PER DAY
     Route: 055
     Dates: start: 20100301
  2. XOPENEX [Concomitant]
  3. SPIRIVA [Concomitant]
  4. MYCELEX [Concomitant]
  5. LASIX [Concomitant]
  6. REMICADE [Concomitant]

REACTIONS (4)
  - CANDIDIASIS [None]
  - DRY MOUTH [None]
  - DYSPHONIA [None]
  - TONGUE DISORDER [None]
